FAERS Safety Report 18407103 (Version 1)
Quarter: 2020Q4

REPORT INFORMATION
  Report Type: Spontaneous
  Country: CZ (occurrence: CZ)
  Receive Date: 20201021
  Receipt Date: 20201021
  Transmission Date: 20210114
  Serious: Yes (Other)
  Sender: FDA-Public Use
  Company Number: CZ-TEVA-2020-CZ-1838385

PATIENT
  Age: 60 Year
  Sex: Male

DRUGS (4)
  1. CALCIUM FOLINATE [Suspect]
     Active Substance: LEUCOVORIN CALCIUM
     Indication: RECTAL ADENOCARCINOMA
     Dosage: 41 CYCLES IN MFOLFOX REGIMEN
     Route: 042
  2. OXALIPLATIN. [Suspect]
     Active Substance: OXALIPLATIN
     Indication: RECTAL ADENOCARCINOMA
     Dosage: 36 CYCLES IN MFOLFOX REGIMEN
     Route: 042
  3. 5-FLUOROURACIL [Concomitant]
     Active Substance: FLUOROURACIL
     Route: 065
  4. PANITUMUAB [Suspect]
     Active Substance: PANITUMUMAB
     Indication: RECTAL ADENOCARCINOMA
     Dosage: FOLFOX REGIMEN + PANITUMUAB
     Route: 065

REACTIONS (6)
  - Pulmonary embolism [Unknown]
  - Flushing [Recovered/Resolved]
  - Neutropenia [Recovered/Resolved]
  - Drug intolerance [Recovered/Resolved]
  - Hypomagnesaemia [Unknown]
  - Erythema [Recovered/Resolved]
